FAERS Safety Report 10188386 (Version 2)
Quarter: 2014Q2

REPORT INFORMATION
  Report Type: Spontaneous
  Country: GB (occurrence: GB)
  Receive Date: 20140522
  Receipt Date: 20140522
  Transmission Date: 20141212
  Serious: Yes (Disabling)
  Sender: FDA-Public Use
  Company Number: GB-WATSON-2013-13401

PATIENT
  Age: 59 Year
  Sex: Male
  Weight: 100 kg

DRUGS (9)
  1. NAPROXEN [Suspect]
     Indication: PAIN
     Dosage: 500 MG, BID
     Route: 048
  2. CHLORAMPHENICOL [Suspect]
     Indication: PRODUCT USED FOR UNKNOWN INDICATION
     Dosage: UNK, EYE OINTMENT
     Route: 065
  3. METOJECT [Suspect]
     Indication: RHEUMATOID ARTHRITIS
     Dosage: 30 MG EVERY WEEK
     Route: 058
     Dates: end: 20130529
  4. MABTHERA [Suspect]
     Indication: RHEUMATOID ARTHRITIS
     Dosage: 1000 MG,  2 INFUSION 2 WEEKS APART
     Route: 042
     Dates: start: 20130515
  5. MABTHERA [Suspect]
     Dosage: 1000 MG, 2 INFUSION 2 WEEKS APART
     Route: 042
     Dates: start: 20130528
  6. CODEINE [Concomitant]
     Indication: PRODUCT USED FOR UNKNOWN INDICATION
     Dosage: UNK, 1 PRN
     Route: 065
  7. OMEPRAZOLE [Concomitant]
     Indication: PROPHYLAXIS
     Dosage: 20 MG, UNKNOWN
     Route: 048
  8. FOLIC ACID [Concomitant]
     Indication: PRODUCT USED FOR UNKNOWN INDICATION
     Dosage: UNK
     Route: 065
  9. PARACETAMOL [Concomitant]
     Indication: PAIN
     Dosage: UNK
     Route: 065

REACTIONS (1)
  - Infection [Not Recovered/Not Resolved]
